FAERS Safety Report 15506747 (Version 1)
Quarter: 2018Q4

REPORT INFORMATION
  Report Type: Spontaneous
  Country: CZ (occurrence: CZ)
  Receive Date: 20181016
  Receipt Date: 20181016
  Transmission Date: 20190205
  Serious: Yes (Other)
  Sender: FDA-Public Use
  Company Number: PHHY2018CZ124419

PATIENT

DRUGS (2)
  1. DEXAMETHASONE. [Suspect]
     Active Substance: DEXAMETHASONE
     Indication: LIGHT CHAIN DISEASE
     Dosage: 40 MG, CYCLIC (TWO PULSES OF 40MG ON DAYS 1-4 AND DAYS15-18 OF THE 28-DAY CYCLE)
     Route: 065
  2. BORTEZOMIB. [Suspect]
     Active Substance: BORTEZOMIB
     Indication: LIGHT CHAIN DISEASE
     Dosage: 1.3 MG/M2, CYCLIC (ON DAY 1, 4, 8 AND 15 OF THE 28-DAY CYCLE)
     Route: 065

REACTIONS (1)
  - Neuropathy peripheral [Unknown]
